FAERS Safety Report 8453545-1 (Version None)
Quarter: 2012Q2

REPORT INFORMATION
  Report Type: 
  Country: None (occurrence: None)
  Receive Date: 20120614
  Receipt Date: 20120530
  Transmission Date: 20120825
  Serious: Yes (Other)
  Sender: FDA-Public Use
  Company Number: TPA2012A03406

PATIENT
  Age: 80 Year
  Sex: Male

DRUGS (7)
  1. BERODUAL (FENOTEROL HYDROBROMIDE, IPRATROPIUM BROMIDE) [Concomitant]
  2. VERAMEX (VERAPAMIL HYDROCHLORIDE) [Concomitant]
  3. RISEDRONAT (RISEDRONATE SODIUM) [Concomitant]
  4. FLUTIDE (FLUTICASONE PROPIONATE) [Concomitant]
  5. PREDNISOLONE [Concomitant]
  6. ADENURIC (FEBUXOSTAT) [Suspect]
     Indication: HYPERURICAEMIA
     Dosage: 80 MG (80 MG, 1 IN 1 D) ORAL
     Route: 048
     Dates: start: 20120418, end: 20120423
  7. CALCIMAGON (CALCIUM CARBONATE) [Concomitant]

REACTIONS (2)
  - CIRCULATORY COLLAPSE [None]
  - ORTHOSTATIC INTOLERANCE [None]
